FAERS Safety Report 5409956-1 (Version None)
Quarter: 2007Q3

REPORT INFORMATION
  Report Type: 
  Country: None (occurrence: None)
  Receive Date: 20070713
  Receipt Date: 20070424
  Transmission Date: 20080115
  Serious: No
  Sender: FDA-Public Use
  Company Number: 2007SP001514

PATIENT
  Age: 62 Year
  Sex: Female

DRUGS (5)
  1. LUNESTA [Suspect]
     Dosage: 2 MG; ORAL, 4 MG; ORAL
     Route: 048
     Dates: start: 20070330, end: 20070301
  2. LUNESTA [Suspect]
     Dosage: 2 MG; ORAL, 4 MG; ORAL
     Route: 048
     Dates: start: 20070401
  3. GAS X (125 MG) [Suspect]
     Indication: ABDOMINAL DISTENSION
     Dosage: 25 MG;QD;ORAL
     Route: 048
     Dates: start: 20070331, end: 20070402
  4. GAS X (125 MG) [Suspect]
     Indication: ERUCTATION
     Dosage: 25 MG;QD;ORAL
     Route: 048
     Dates: start: 20070331, end: 20070402
  5. IBUPROFEN [Suspect]
     Dosage: 600 MG;IX;ORAL
     Route: 048
     Dates: start: 20070401

REACTIONS (7)
  - ABDOMINAL DISTENSION [None]
  - ERUCTATION [None]
  - ERYTHEMA [None]
  - FEELING ABNORMAL [None]
  - POLLAKIURIA [None]
  - STOMATITIS [None]
  - SWELLING FACE [None]
